FAERS Safety Report 16773050 (Version 1)
Quarter: 2019Q3

REPORT INFORMATION
  Report Type: Report from Study
  Country: CA (occurrence: CA)
  Receive Date: 20190904
  Receipt Date: 20190904
  Transmission Date: 20191005
  Serious: Yes (Hospitalization, Other)
  Sender: FDA-Public Use
  Company Number: CA-TEVA-2019-CA-1101344

PATIENT
  Age: 72 Year
  Sex: Female

DRUGS (13)
  1. XARELTO [Concomitant]
     Active Substance: RIVAROXABAN
  2. CLONAZEPAM. [Concomitant]
     Active Substance: CLONAZEPAM
  3. RANITIDINE. [Concomitant]
     Active Substance: RANITIDINE
  4. SENOKOT [Concomitant]
     Active Substance: SENNOSIDES
  5. ACETAMINOPHEN. [Concomitant]
     Active Substance: ACETAMINOPHEN
     Indication: PREMEDICATION
     Route: 048
  6. APO-ESCITALOPRAM [Concomitant]
     Active Substance: ESCITALOPRAM OXALATE
  7. PROCHLORPERAZINE. [Concomitant]
     Active Substance: PROCHLORPERAZINE
  8. DEXAMETHASONE. [Concomitant]
     Active Substance: DEXAMETHASONE
  9. TEMODAL [Concomitant]
     Active Substance: TEMOZOLOMIDE
  10. METHYLPREDNISOLONE. [Suspect]
     Active Substance: METHYLPREDNISOLONE
     Indication: PREMEDICATION
     Route: 042
  11. AVASTIN [Suspect]
     Active Substance: BEVACIZUMAB
     Indication: GLIOMA
     Route: 042
  12. VALPROIC ACID. [Concomitant]
     Active Substance: VALPROIC ACID
  13. DAPSONE. [Concomitant]
     Active Substance: DAPSONE

REACTIONS (5)
  - Infusion related reaction [Recovered/Resolved]
  - Ulcer [Recovered/Resolved]
  - Complication of device insertion [Recovered/Resolved]
  - Oxygen saturation decreased [Recovered/Resolved]
  - Rectal haemorrhage [Recovered/Resolved]
